FAERS Safety Report 10955905 (Version 1)
Quarter: 2015Q1

REPORT INFORMATION
  Report Type: Report from Study
  Country: US (occurrence: US)
  Receive Date: 20150326
  Receipt Date: 20150326
  Transmission Date: 20150721
  Serious: Yes (Hospitalization)
  Sender: FDA-Public Use
  Company Number: US-ROCHE-1555772

PATIENT
  Age: 60 Year
  Sex: Female
  Weight: 59.6 kg

DRUGS (4)
  1. LEUCOVORIN [Suspect]
     Active Substance: LEUCOVORIN
     Indication: COLON CANCER STAGE II
     Dosage: OVER 2 HRS ON DAY 1?LAST DOSE OF DRUG PRIOR TO SAE ON 19/FEB/2009
     Route: 042
     Dates: start: 20090108
  2. BEVACIZUMAB [Suspect]
     Active Substance: BEVACIZUMAB
     Indication: COLON CANCER STAGE II
     Dosage: 30-90 MIN ON DAY 1?LAST DOSE OF DRUG PRIOR TO SAE ON 19/FEB/2009
     Route: 042
     Dates: start: 20090108
  3. OXALIPLATIN. [Suspect]
     Active Substance: OXALIPLATIN
     Indication: COLON CANCER STAGE II
     Dosage: OVER 2 HRS ON DAY 1?LAST DOSE OF DRUG PRIOR TO SAE ON 19/FEB/2009
     Route: 042
     Dates: start: 20090108
  4. 5-FU [Suspect]
     Active Substance: FLUOROURACIL
     Indication: COLON CANCER STAGE II
     Dosage: LAST DOSE OF DRUG PRIOR TO SAE ON 19/FEB/2009
     Route: 040
     Dates: start: 20090108

REACTIONS (1)
  - Vascular access complication [Not Recovered/Not Resolved]

NARRATIVE: CASE EVENT DATE: 20090305
